FAERS Safety Report 24905453 (Version 4)
Quarter: 2025Q2

REPORT INFORMATION
  Report Type: Report from Study
  Country: US (occurrence: US)
  Receive Date: 20250130
  Receipt Date: 20250520
  Transmission Date: 20250716
  Serious: No
  Sender: SUNOVION
  Company Number: US-SMPA-2025SPA000620AA

PATIENT

DRUGS (6)
  1. ORGOVYX [Suspect]
     Active Substance: RELUGOLIX
     Indication: Prostate cancer
     Dosage: 360 MG, SINGLE
     Route: 048
     Dates: start: 20240830, end: 20240830
  2. ORGOVYX [Suspect]
     Active Substance: RELUGOLIX
     Dosage: 120 MG, QD, PRIOR TO BIOLOGICS
     Route: 048
     Dates: start: 20240831
  3. ORGOVYX [Suspect]
     Active Substance: RELUGOLIX
     Dosage: 120 MG, QD, WITH BIOLOGICS
     Route: 048
     Dates: start: 20250104
  4. XTANDI [Suspect]
     Active Substance: ENZALUTAMIDE
     Indication: Product used for unknown indication
     Route: 065
  5. XTANDI [Suspect]
     Active Substance: ENZALUTAMIDE
     Route: 065
  6. XTANDI [Suspect]
     Active Substance: ENZALUTAMIDE

REACTIONS (9)
  - Flatulence [Unknown]
  - Dry skin [Unknown]
  - Haemorrhoids [Unknown]
  - Bone density decreased [Unknown]
  - Abdominal discomfort [Unknown]
  - Asthenia [Unknown]
  - Blood cholesterol increased [Unknown]
  - Constipation [Unknown]
  - Hot flush [Unknown]
